FAERS Safety Report 24340399 (Version 1)
Quarter: 2024Q3

REPORT INFORMATION
  Report Type: Spontaneous
  Country: GB (occurrence: GB)
  Receive Date: 20240919
  Receipt Date: 20240919
  Transmission Date: 20241016
  Serious: Yes (Other)
  Sender: AMGEN
  Company Number: GB-AMGEN-GBRSP2024185477

PATIENT
  Sex: Male

DRUGS (1)
  1. ARANESP [Suspect]
     Active Substance: DARBEPOETIN ALFA
     Indication: Product used for unknown indication
     Dosage: 100 MICROGRAM, Q4WK (130MCG PFS, ROUTE: INJECTION)
     Route: 065

REACTIONS (4)
  - Neoplasm malignant [Unknown]
  - Renal failure [Unknown]
  - Liver disorder [Unknown]
  - Terminal state [Unknown]
